FAERS Safety Report 9161605 (Version 1)
Quarter: 2013Q1

REPORT INFORMATION
  Report Type: Spontaneous
  Country: US (occurrence: US)
  Receive Date: 20130313
  Receipt Date: 20130313
  Transmission Date: 20140127
  Serious: Yes (Congenital Anomaly)
  Sender: FDA-Public Use
  Company Number: US-009507513-1107USA02181B1

PATIENT
  Sex: Male

DRUGS (1)
  1. PROSCAR [Suspect]
     Route: 064

REACTIONS (10)
  - Thyroid disorder [Unknown]
  - Urethral disorder [Unknown]
  - Hypothalamo-pituitary disorder [Unknown]
  - Genital disorder male [Unknown]
  - Gender identity disorder [Unknown]
  - Testicular disorder [Unknown]
  - Penis disorder [Unknown]
  - Urethral repair [Unknown]
  - Erectile dysfunction [Unknown]
  - Foetal exposure during pregnancy [Recovered/Resolved]
